FAERS Safety Report 9346368 (Version 2)
Quarter: 2013Q3

REPORT INFORMATION
  Report Type: Spontaneous
  Country: US (occurrence: US)
  Receive Date: 20130613
  Receipt Date: 20130725
  Transmission Date: 20140515
  Serious: Yes (Other)
  Sender: FDA-Public Use
  Company Number: US-PFIZER INC-2013173780

PATIENT
  Age: 53 Year
  Sex: Female

DRUGS (1)
  1. PRISTIQ [Suspect]
     Dosage: 100 MG, 1X/DAY

REACTIONS (8)
  - Systemic lupus erythematosus [Unknown]
  - Rheumatoid arthritis [Unknown]
  - Cognitive disorder [Unknown]
  - Memory impairment [Unknown]
  - Activities of daily living impaired [Unknown]
  - Muscle disorder [Unknown]
  - Depression [Unknown]
  - Impaired work ability [Unknown]
